FAERS Safety Report 22255260 (Version 8)
Quarter: 2023Q2

REPORT INFORMATION
  Report Type: Report from Study
  Country: JP (occurrence: JP)
  Receive Date: 20230426
  Receipt Date: 20230522
  Transmission Date: 20230722
  Serious: Yes (Hospitalization, Other)
  Sender: FDA-Public Use
  Company Number: JP-BIOVITRUM-2023-JP-009440

PATIENT
  Age: 59 Year
  Sex: Female
  Weight: 56.6 kg

DRUGS (7)
  1. AVATROMBOPAG [Suspect]
     Active Substance: AVATROMBOPAG
     Indication: Immune thrombocytopenia
     Dosage: 40MG THREE TIMES A WEEK AND 20MG ON FOUR REMAINING DAYS OF EACH WEEK
     Route: 048
     Dates: start: 20230228, end: 20230313
  2. AVATROMBOPAG [Suspect]
     Active Substance: AVATROMBOPAG
     Dosage: ONCE DAILY
     Route: 048
     Dates: start: 20230314, end: 20230417
  3. AVATROMBOPAG [Suspect]
     Active Substance: AVATROMBOPAG
     Dosage: DAILY
     Route: 048
     Dates: start: 20221226, end: 20230227
  4. ACETAMINOPHEN [Concomitant]
     Active Substance: ACETAMINOPHEN
     Indication: Headache
     Dosage: 400MG/2WEEKS
     Dates: start: 20220426
  5. ACETAMINOPHEN [Concomitant]
     Active Substance: ACETAMINOPHEN
     Indication: Muscle tightness
  6. HYALURONAT Na [Concomitant]
     Indication: Dry eye
     Dates: start: 2012
  7. GLUTATHIONE [Concomitant]
     Active Substance: GLUTATHIONE
     Indication: Complications of transplanted liver
     Dates: start: 20230403, end: 20230417

REACTIONS (1)
  - Autoimmune hepatitis [Recovering/Resolving]

NARRATIVE: CASE EVENT DATE: 20230403
